FAERS Safety Report 10013342 (Version 1)
Quarter: 2014Q1

REPORT INFORMATION
  Report Type: Spontaneous
  Country: US (occurrence: US)
  Receive Date: 20140314
  Receipt Date: 20140314
  Transmission Date: 20141002
  Serious: No
  Sender: FDA-Public Use
  Company Number: US-PFIZER INC-2014074781

PATIENT
  Age: 70 Year
  Sex: Female
  Weight: 58.05 kg

DRUGS (4)
  1. ATORVASTATIN CALCIUM [Suspect]
     Indication: BLOOD CHOLESTEROL INCREASED
     Dosage: 10 MG, DAILY
     Dates: start: 201401
  2. PRILOSEC [Concomitant]
     Dosage: 20 MG, DAILY
  3. ALPRAZOLAM [Concomitant]
     Dosage: 0.5 MG, DAILY
  4. VITAMIN D [Concomitant]
     Dosage: 50000 IU, MONTHLY

REACTIONS (1)
  - Drug ineffective [Unknown]
